FAERS Safety Report 20240389 (Version 3)
Quarter: 2022Q2

REPORT INFORMATION
  Report Type: Spontaneous
  Country: US (occurrence: US)
  Receive Date: 20211228
  Receipt Date: 20220623
  Transmission Date: 20220721
  Serious: Yes (Other)
  Sender: FDA-Public Use
  Company Number: US-PFIZER INC-202101795330

PATIENT
  Age: 63 Year
  Sex: Female
  Weight: 78.8 kg

DRUGS (12)
  1. IBRANCE [Suspect]
     Active Substance: PALBOCICLIB
     Indication: Breast cancer female
     Dosage: 125 MG, CYCLIC (ON DAY 1-21 OF EACH 28DAYS CYCLE)
     Route: 048
     Dates: start: 202110
  2. IBRANCE [Suspect]
     Active Substance: PALBOCICLIB
     Dosage: 125 MG, ONCE DAILY FOR 21 DAYS
     Route: 048
     Dates: start: 20211105
  3. IMMUNE SUPPORT [Concomitant]
     Dosage: UNK (250-12.5MG TAB CHEW)
  4. IBUPROFEN [Concomitant]
     Active Substance: IBUPROFEN
     Dosage: UNK
  5. DICLOFENAC [Concomitant]
     Active Substance: DICLOFENAC
     Dosage: 35 MG
  6. AMLODIPINE BESYLATE [Concomitant]
     Active Substance: AMLODIPINE BESYLATE
     Dosage: UNK (100 % POWDER)
  7. VITAMIN D3 [Concomitant]
     Active Substance: CHOLECALCIFEROL
     Dosage: UNK (100000/G POWDER)
  8. TEA TREE OIL [Concomitant]
     Active Substance: TEA TREE OIL
     Dosage: UNK (1:20 VIAL)
  9. ANASTROZOLE [Concomitant]
     Active Substance: ANASTROZOLE
     Indication: Breast cancer
     Dosage: UNK (100 % POWDER)
  10. ANASTROZOLE [Concomitant]
     Active Substance: ANASTROZOLE
     Dosage: UNK
     Dates: start: 202110
  11. TRAMADOL [Concomitant]
     Active Substance: TRAMADOL
     Indication: Pain
     Dosage: UNK
  12. ZOFRAN [Concomitant]
     Active Substance: ONDANSETRON HYDROCHLORIDE
     Indication: Nausea
     Dosage: UNK

REACTIONS (4)
  - Rotator cuff syndrome [Unknown]
  - Constipation [Unknown]
  - Diarrhoea [Unknown]
  - Arthritis [Unknown]

NARRATIVE: CASE EVENT DATE: 20211001
